FAERS Safety Report 25728813 (Version 1)
Quarter: 2025Q3

REPORT INFORMATION
  Report Type: Spontaneous
  Country: CN (occurrence: CN)
  Receive Date: 20250826
  Receipt Date: 20250826
  Transmission Date: 20251021
  Serious: Yes (Other)
  Sender: NOVO NORDISK
  Company Number: CN-NOVOPROD-1503692

PATIENT
  Age: 59 Year
  Sex: Female
  Weight: 65 kg

DRUGS (3)
  1. VICTOZA [Suspect]
     Active Substance: LIRAGLUTIDE
     Indication: Diabetes mellitus
  2. VICTOZA [Suspect]
     Active Substance: LIRAGLUTIDE
  3. VICTOZA [Suspect]
     Active Substance: LIRAGLUTIDE

REACTIONS (3)
  - Breast cancer [Unknown]
  - Blood glucose increased [Unknown]
  - Inappropriate schedule of product administration [Unknown]
